FAERS Safety Report 5110081-8 (Version None)
Quarter: 2006Q3

REPORT INFORMATION
  Report Type: 
  Country: None (occurrence: None)
  Receive Date: 20060921
  Receipt Date: 20060824
  Transmission Date: 20061208
  Serious: Yes (Disabling)
  Sender: FDA-Public Use
  Company Number: FR-AVENTIS-200612965FR

PATIENT
  Age: 31 Year
  Sex: Male
  Weight: 66 kg

DRUGS (5)
  1. RIFADIN [Suspect]
     Indication: ENDOCARDITIS
     Route: 048
     Dates: start: 20060515, end: 20060616
  2. OFLOCET [Suspect]
     Indication: ENDOCARDITIS
     Route: 048
     Dates: start: 20060601, end: 20060616
  3. PREVISCAN [Suspect]
     Indication: DRUG USE FOR UNKNOWN INDICATION
     Route: 048
     Dates: start: 20060518, end: 20060704
  4. TARDYFERON [Concomitant]
     Indication: DRUG USE FOR UNKNOWN INDICATION
     Route: 048
     Dates: start: 20060602, end: 20060609
  5. CARDENSIEL [Concomitant]
     Dates: start: 20060609

REACTIONS (4)
  - ARTHRALGIA [None]
  - GAIT DISTURBANCE [None]
  - JOINT SWELLING [None]
  - TENDONITIS [None]
